FAERS Safety Report 15785377 (Version 1)
Quarter: 2019Q1

REPORT INFORMATION
  Report Type: Report from Study
  Country: US (occurrence: US)
  Receive Date: 20190103
  Receipt Date: 20190103
  Transmission Date: 20190417
  Serious: Yes (Hospitalization)
  Sender: FDA-Public Use
  Company Number: US-BAYER-2018-158430

PATIENT
  Age: 41 Year
  Sex: Female
  Weight: 141.04 kg

DRUGS (3)
  1. ADEMPAS [Suspect]
     Active Substance: RIOCIGUAT
     Indication: PULMONARY ARTERIAL HYPERTENSION
     Dosage: UNK
     Dates: start: 201712
  2. ADEMPAS [Suspect]
     Active Substance: RIOCIGUAT
     Indication: PULMONARY ARTERIAL HYPERTENSION
     Dosage: 15 MG, TID
     Route: 048
  3. ADEMPAS [Suspect]
     Active Substance: RIOCIGUAT
     Indication: PULMONARY ARTERIAL HYPERTENSION
     Dosage: UNK
     Dates: start: 20180824

REACTIONS (7)
  - Lung disorder [Unknown]
  - Dyspnoea [Unknown]
  - Hypotension [Unknown]
  - Dyspnoea exertional [Not Recovered/Not Resolved]
  - Atrial fibrillation [None]
  - Fall [None]
  - Hospitalisation [Unknown]

NARRATIVE: CASE EVENT DATE: 2018
